FAERS Safety Report 10144824 (Version 1)
Quarter: 2014Q2

REPORT INFORMATION
  Report Type: Spontaneous
  Country: US (occurrence: US)
  Receive Date: 20140430
  Receipt Date: 20140430
  Transmission Date: 20141212
  Serious: Yes (Hospitalization)
  Sender: FDA-Public Use
  Company Number: US-SA-2014SA008403

PATIENT
  Age: 85 Year
  Sex: Female

DRUGS (14)
  1. LOVENOX [Suspect]
     Indication: PULMONARY EMBOLISM
     Route: 065
     Dates: start: 20131114
  2. LOVENOX [Suspect]
     Indication: DEEP VEIN THROMBOSIS
     Route: 065
     Dates: start: 20131114
  3. REVLIMID [Suspect]
     Indication: MYELODYSPLASTIC SYNDROME
     Dosage: 5 MG ONCE IN 2 DAY
     Route: 048
     Dates: start: 20130926
  4. REVLIMID [Suspect]
     Indication: MYELODYSPLASTIC SYNDROME
     Dosage: 5 MG ONCE IN 2 DAY
     Route: 048
     Dates: start: 201311
  5. REVLIMID [Suspect]
     Indication: MYELODYSPLASTIC SYNDROME
     Dosage: 5 MG ONCE IN 2 DAY
     Route: 048
     Dates: start: 20131111, end: 20131113
  6. PROCRIT [Concomitant]
     Indication: MYELODYSPLASTIC SYNDROME
     Dosage: DOSE:60000 UNIT(S)
     Dates: start: 20130522, end: 20131113
  7. PROCRIT [Concomitant]
     Indication: ANAEMIA
     Dosage: DOSE:60000 UNIT(S)
     Dates: start: 20130522, end: 20131113
  8. AMLODIPINE [Concomitant]
     Indication: HYPERTENSION
  9. DYAZIDE [Concomitant]
     Indication: HYPERTENSION
     Dosage: DAILY DOSE: 37.5 MG-25 MG (1 IN 1 D)
  10. DEXILANT [Concomitant]
     Indication: AUTOIMMUNE HAEMOLYTIC ANAEMIA
     Route: 065
  11. DEXILANT [Concomitant]
     Indication: GASTROOESOPHAGEAL REFLUX DISEASE
     Route: 065
  12. PEPCID [Concomitant]
     Indication: AUTOIMMUNE HAEMOLYTIC ANAEMIA
  13. PEPCID [Concomitant]
     Indication: GASTROOESOPHAGEAL REFLUX DISEASE
  14. HEPARIN [Concomitant]
     Dates: start: 20131114

REACTIONS (1)
  - Creatinine renal clearance decreased [Recovered/Resolved]
